FAERS Safety Report 5268639-1 (Version None)
Quarter: 2007Q1

REPORT INFORMATION
  Report Type: 
  Country: None (occurrence: None)
  Receive Date: 20070313
  Receipt Date: 20070310
  Transmission Date: 20070707
  Serious: Yes (Other)
  Sender: FDA-Public Use
  Company Number: 235994

PATIENT
  Sex: Female

DRUGS (1)
  1. MABTHERA (RITUXIMAB) CONC FOR SOLUTION FOR INFUSION [Suspect]
     Dates: start: 20061101

REACTIONS (2)
  - ABORTION INDUCED [None]
  - DRUG EXPOSURE BEFORE PREGNANCY [None]
